FAERS Safety Report 25384207 (Version 2)
Quarter: 2025Q2

REPORT INFORMATION
  Report Type: Report from Study
  Country: US (occurrence: US)
  Receive Date: 20250602
  Receipt Date: 20250602
  Transmission Date: 20250717
  Serious: Yes (Hospitalization)
  Sender: Unknown Manufacturer
  Company Number: US-MIRUM PHARMACEUTICALS, INC.-US-MIR-25-00293

PATIENT

DRUGS (1)
  1. LIVMARLI [Suspect]
     Active Substance: MARALIXIBAT CHLORIDE
     Indication: Progressive familial intrahepatic cholestasis
     Dosage: 0.3 MILLILITER, BID
     Route: 065
     Dates: start: 2025

REACTIONS (6)
  - Feeding intolerance [Unknown]
  - Pruritus [Unknown]
  - COVID-19 [Unknown]
  - Rotavirus infection [Unknown]
  - Feeding intolerance [Unknown]
  - Ascites [Unknown]

NARRATIVE: CASE EVENT DATE: 20250101
